FAERS Safety Report 6857145-6 (Version None)
Quarter: 2010Q3

REPORT INFORMATION
  Report Type: 
  Country: None (occurrence: None)
  Receive Date: 20100719
  Receipt Date: 20100712
  Transmission Date: 20110219
  Serious: Yes (Life-Threatening, Hospitalization)
  Sender: FDA-Public Use
  Company Number: D0068291A

PATIENT
  Age: 58 Year
  Sex: Female
  Weight: 54 kg

DRUGS (2)
  1. RANITIDINE HCL [Suspect]
     Dosage: 50MG PER DAY
     Route: 042
  2. CLEMASTINE FUMARATE [Suspect]
     Dosage: 2MG PER DAY
     Route: 042

REACTIONS (7)
  - BLOOD PRESSURE IMMEASURABLE [None]
  - CYANOSIS [None]
  - FLUSHING [None]
  - HYPERSENSITIVITY [None]
  - PERIPHERAL CIRCULATORY FAILURE [None]
  - PRURITUS [None]
  - PULSE ABSENT [None]
